FAERS Safety Report 13502486 (Version 2)
Quarter: 2019Q3

REPORT INFORMATION
  Report Type: Spontaneous
  Country: US (occurrence: US)
  Receive Date: 20170502
  Receipt Date: 20190822
  Transmission Date: 20191004
  Serious: Yes (Hospitalization)
  Sender: FDA-Public Use
  Company Number: US-TEVA-764073USA

PATIENT
  Age: 27 Year
  Sex: Female

DRUGS (3)
  1. CLONAZEPAM. [Concomitant]
     Active Substance: CLONAZEPAM
     Indication: DEPRESSION
     Route: 065
  2. HALOPERIDOL. [Suspect]
     Active Substance: HALOPERIDOL
     Indication: AGITATION
     Dosage: NINE DOSES OF UNKNOWN STRENGTH OVER 3 DAYS FOLLOWED BY 5 MG AS NEEDED AT ADMISSION
     Route: 065
  3. HALOPERIDOL. [Suspect]
     Active Substance: HALOPERIDOL
     Indication: ANXIETY
     Dosage: NINE DOSES OF UNKNOWN STRENGTH OVER 3 DAYS FOLLOWED BY 5 MG AS NEEDED AT ADMISSION
     Route: 065

REACTIONS (3)
  - Dystonia [Recovered/Resolved]
  - Uterine disorder [Recovered/Resolved]
  - Maternal exposure during pregnancy [Unknown]
